FAERS Safety Report 5866455-0 (Version None)
Quarter: 2008Q3

REPORT INFORMATION
  Report Type: 
  Country: None (occurrence: None)
  Receive Date: 20080902
  Receipt Date: 20080821
  Transmission Date: 20090109
  Serious: Yes (Hospitalization)
  Sender: FDA-Public Use
  Company Number: US-JNJFOC-20080805788

PATIENT
  Sex: Female
  Weight: 89.81 kg

DRUGS (5)
  1. DURAGESIC-100 [Suspect]
     Route: 062
  2. DURAGESIC-100 [Suspect]
     Indication: BACK PAIN
     Route: 062
  3. NEURONTIN [Concomitant]
     Route: 048
  4. PERCOCET [Concomitant]
     Indication: PAIN
     Dosage: 5/325MG
     Route: 048
  5. LEXAPRO [Concomitant]
     Indication: DEPRESSION
     Route: 048

REACTIONS (10)
  - BLOOD PRESSURE INCREASED [None]
  - DRUG DEPENDENCE [None]
  - FATIGUE [None]
  - MENTAL DISORDER [None]
  - NAUSEA [None]
  - OVERDOSE [None]
  - SUICIDAL IDEATION [None]
  - THYROID DISORDER [None]
  - TREATMENT NONCOMPLIANCE [None]
  - TREMOR [None]
